FAERS Safety Report 7719080-0 (Version None)
Quarter: 2011Q3

REPORT INFORMATION
  Report Type: 
  Country: None (occurrence: None)
  Receive Date: 20110830
  Receipt Date: 20110822
  Transmission Date: 20111222
  Serious: Yes (Disabling)
  Sender: FDA-Public Use
  Company Number: US-MERCK-1103USA01242

PATIENT
  Age: 60 Year
  Sex: Female

DRUGS (5)
  1. FOSAMAX [Suspect]
     Indication: OSTEOPOROSIS PROPHYLAXIS
     Route: 048
     Dates: start: 19950101, end: 20080701
  2. [THERAPY UNSPECIFIED] [Concomitant]
     Route: 065
     Dates: start: 19900101
  3. FOSAMAX [Suspect]
     Indication: OSTEOPOROSIS
     Route: 048
     Dates: start: 19950101, end: 20080701
  4. ASACOL [Concomitant]
     Route: 065
     Dates: start: 19990301
  5. CALCIUM (UNSPECIFIED) [Concomitant]
     Route: 065
     Dates: start: 19800101

REACTIONS (6)
  - ANXIETY [None]
  - DEPRESSION [None]
  - FEMUR FRACTURE [None]
  - INFLAMMATORY BOWEL DISEASE [None]
  - DENTAL CARIES [None]
  - TOOTH DISORDER [None]
